FAERS Safety Report 5092877-4 (Version None)
Quarter: 2006Q3

REPORT INFORMATION
  Report Type: 
  Country: None (occurrence: None)
  Receive Date: 20060828
  Receipt Date: 20060811
  Transmission Date: 20061208
  Serious: Yes (Hospitalization)
  Sender: FDA-Public Use
  Company Number: 430001M06SWE

PATIENT
  Age: 43 Year
  Sex: Female

DRUGS (2)
  1. NOVANTRONE [Suspect]
     Indication: MULTIPLE SCLEROSIS
     Dosage: 12 MG/M2, 1 IN 3 MONTHS, INTRAVENOUS
     Route: 042
  2. NEUPOGEN [Concomitant]

REACTIONS (4)
  - BLOOD TEST ABNORMAL [None]
  - LEUKOPENIA [None]
  - NEUTROPHIL COUNT DECREASED [None]
  - URINARY TRACT INFECTION [None]
